FAERS Safety Report 8923372 (Version 1)
Quarter: 2012Q4

REPORT INFORMATION
  Report Type: 
  Country: US (occurrence: US)
  Receive Date: 20121124
  Receipt Date: 20121124
  Transmission Date: 20130627
  Serious: Yes (Hospitalization, Other)
  Sender: FDA-Public Use
  Company Number: PHEH2012US022941

PATIENT
  Age: 63 Year
  Sex: Male

DRUGS (1)
  1. MYFORTIC [Suspect]
     Dosage: 360 mg, BID
     Route: 048

REACTIONS (4)
  - Pleural effusion [Unknown]
  - Pyrexia [Unknown]
  - Renal impairment [Unknown]
  - Multi-organ disorder [Unknown]
